FAERS Safety Report 7729382-X (Version None)
Quarter: 2011Q3

REPORT INFORMATION
  Report Type: 
  Country: None (occurrence: None)
  Receive Date: 20110906
  Receipt Date: 20110822
  Transmission Date: 20111222
  Serious: Yes (Other)
  Sender: FDA-Public Use
  Company Number: US-JNJFOC-20110812807

PATIENT
  Sex: Female
  Weight: 108.86 kg

DRUGS (3)
  1. TOPAMAX [Suspect]
     Route: 048
     Dates: start: 20110801
  2. TOPAMAX [Suspect]
     Route: 048
     Dates: start: 20090101, end: 20110801
  3. TOPAMAX [Suspect]
     Indication: MIGRAINE PROPHYLAXIS
     Route: 048
     Dates: start: 20110801, end: 20110801

REACTIONS (8)
  - WITHDRAWAL SYNDROME [None]
  - NIGHTMARE [None]
  - STARING [None]
  - ANXIETY [None]
  - EXTRASYSTOLES [None]
  - PALPITATIONS [None]
  - FEELING JITTERY [None]
  - FEELING ABNORMAL [None]
